FAERS Safety Report 5569595-9 (Version None)
Quarter: 2007Q4

REPORT INFORMATION
  Report Type: 
  Country: None (occurrence: None)
  Receive Date: 20071220
  Receipt Date: 20071207
  Transmission Date: 20080405
  Serious: Yes (Other)
  Sender: FDA-Public Use
  Company Number: GB-RANBAXY-2007RR-12008

PATIENT

DRUGS (3)
  1. CODEINE SUL TAB [Suspect]
     Indication: MIGRAINE
     Dosage: UNK
     Route: 048
     Dates: start: 20070811, end: 20070811
  2. MIDRID [Suspect]
     Indication: MIGRAINE
     Dosage: 2 DF, UNK
     Route: 048
     Dates: start: 20070811, end: 20070811
  3. PARACETAMOL CAPSULES 500MG [Suspect]
     Indication: MIGRAINE
     Dosage: 3 G, PRN
     Route: 048
     Dates: start: 20070811, end: 20070811

REACTIONS (2)
  - ASTHENIA [None]
  - DIZZINESS [None]
